FAERS Safety Report 5633513-5 (Version None)
Quarter: 2008Q1

REPORT INFORMATION
  Report Type: 
  Country: None (occurrence: None)
  Receive Date: 20080221
  Receipt Date: 20080220
  Transmission Date: 20080703
  Serious: Yes (Other)
  Sender: FDA-Public Use
  Company Number: US-JNJFOC-20080106294

PATIENT
  Sex: Male

DRUGS (6)
  1. INVEGA [Suspect]
     Indication: SCHIZOPHRENIA
     Route: 048
  2. EFFEXOR [Concomitant]
     Route: 048
  3. LISINOPRIL [Concomitant]
     Route: 048
  4. AMLODIPINE [Concomitant]
     Route: 048
  5. HYDROCHLOROTHIAZINE [Concomitant]
     Route: 048
  6. AMBIEN [Concomitant]
     Route: 048

REACTIONS (1)
  - PRIAPISM [None]
